FAERS Safety Report 5383137-2 (Version None)
Quarter: 2007Q3

REPORT INFORMATION
  Report Type: 
  Country: None (occurrence: None)
  Receive Date: 20070710
  Receipt Date: 20070626
  Transmission Date: 20080115
  Serious: Yes (Other)
  Sender: FDA-Public Use
  Company Number: US-ELI_LILLY_AND_COMPANY-US200706003504

PATIENT
  Age: 47 Year
  Sex: Male

DRUGS (4)
  1. HUMALOG MIX 50/50 [Suspect]
     Indication: DIABETES MELLITUS
  2. HUMULIN N [Suspect]
     Indication: DIABETES MELLITUS
  3. HUMALOG [Suspect]
     Indication: DIABETES MELLITUS
  4. HUMULIN R [Suspect]

REACTIONS (2)
  - BLINDNESS [None]
  - BLOOD GLUCOSE INCREASED [None]
